FAERS Safety Report 25715059 (Version 2)
Quarter: 2025Q3

REPORT INFORMATION
  Report Type: Report from Study
  Country: EU (occurrence: None)
  Receive Date: 20250822
  Receipt Date: 20250926
  Transmission Date: 20251020
  Serious: Yes (Death, Life-Threatening, Hospitalization)
  Sender: ADDMEDICA
  Company Number: EU-ADDMEDICA-2023000009

PATIENT
  Age: 15 Year
  Sex: Female
  Weight: 54 kg

DRUGS (2)
  1. SIKLOS [Suspect]
     Active Substance: HYDROXYUREA
     Indication: Sickle cell anaemia with crisis
     Route: 048
     Dates: start: 201610, end: 20230215
  2. FOLIC ACID [Concomitant]
     Active Substance: FOLIC ACID
     Indication: Sickle cell disease
     Route: 048
     Dates: start: 2007

REACTIONS (2)
  - Embryonal rhabdomyosarcoma [Fatal]
  - Metastases to lung [Fatal]

NARRATIVE: CASE EVENT DATE: 20230101
